FAERS Safety Report 17030751 (Version 1)
Quarter: 2019Q4

REPORT INFORMATION
  Report Type: Spontaneous
  Country: US (occurrence: US)
  Receive Date: 20191011
  Receipt Date: 20191011
  Transmission Date: 20200122
  Serious: Yes (Death, Hospitalization)
  Sender: FDA-Public Use
  Company Number: None

PATIENT
  Age: 37 Year
  Sex: Male
  Weight: 78.5 kg

DRUGS (2)
  1. CISPLATIN (119875) [Suspect]
     Active Substance: CISPLATIN
     Dates: end: 20190914
  2. IFOSFAMIDE. [Suspect]
     Active Substance: IFOSFAMIDE
     Dates: end: 20190914

REACTIONS (1)
  - Respiratory arrest [None]

NARRATIVE: CASE EVENT DATE: 20190923
